FAERS Safety Report 8318865-X (Version None)
Quarter: 2012Q2

REPORT INFORMATION
  Report Type: 
  Country: None (occurrence: None)
  Receive Date: 20120427
  Receipt Date: 20120419
  Transmission Date: 20120825
  Serious: Yes (Other)
  Sender: FDA-Public Use
  Company Number: JP-BAYER-2012-038906

PATIENT
  Age: 67 Year
  Sex: Male
  Weight: 53.2 kg

DRUGS (13)
  1. NEXAVAR [Suspect]
     Dosage: DAILY DOSE 800 MG
     Dates: start: 20110726
  2. NEXAVAR [Suspect]
     Dosage: DAILY DOSE 400 MG
     Dates: start: 20110823, end: 20110830
  3. LASIX [Concomitant]
     Dosage: DAILY DOSE 20 MG
     Route: 048
  4. MUCOSTA [Concomitant]
     Dosage: DAILY DOSE 300 MG
     Route: 048
  5. CANDESARTAN CILEXETIL [Concomitant]
     Dosage: DAILY DOSE 8 MG
     Route: 048
  6. ALINAMIN F [FURSULTIAMINE] [Concomitant]
     Dosage: DAILY DOSE 75 MG
     Route: 048
  7. CONIEL [Concomitant]
     Dosage: DAILY DOSE 4 MG
     Route: 048
  8. UREPEARL [Concomitant]
     Dosage: UNK
     Route: 061
     Dates: start: 20110621
  9. ZOLPIDEM [Concomitant]
     Dosage: DAILY DOSE 5 MG
     Route: 048
  10. AMINOLEBAN EN [Concomitant]
     Dosage: DAILY DOSE 50 G
     Route: 048
  11. LOXONIN [Concomitant]
     Dosage: UNK
     Route: 048
     Dates: start: 20110715
  12. NEXAVAR [Suspect]
     Indication: HEPATIC NEOPLASM MALIGNANT
     Dosage: DAILY DOSE 800 MG
     Route: 048
     Dates: start: 20110704, end: 20110715
  13. URSO 250 [Concomitant]
     Dosage: DAILY DOSE 150 MG
     Route: 048

REACTIONS (6)
  - DIARRHOEA [None]
  - LIVER DISORDER [None]
  - DERMATITIS [None]
  - BLOOD PRESSURE INCREASED [None]
  - PALMAR-PLANTAR ERYTHRODYSAESTHESIA SYNDROME [None]
  - PYREXIA [None]
